FAERS Safety Report 14350149 (Version 1)
Quarter: 2018Q1

REPORT INFORMATION
  Report Type: Spontaneous
  Country: US (occurrence: US)
  Receive Date: 20180104
  Receipt Date: 20180104
  Transmission Date: 20180509
  Serious: No
  Sender: FDA-Public Use
  Company Number: US-BAYER-2018-002116

PATIENT
  Age: 83 Year
  Sex: Male
  Weight: 63.99 kg

DRUGS (3)
  1. MIRALAX [Suspect]
     Active Substance: POLYETHYLENE GLYCOL 3350
     Indication: GASTROINTESTINAL DISORDER
     Dosage: 1 CAPFUL IN WATER DOSE
     Route: 048
     Dates: start: 20171230
  2. GLUCOSE [Concomitant]
     Active Substance: DEXTROSE
  3. CHOLESTEROL [Concomitant]
     Active Substance: CHOLESTEROL

REACTIONS (1)
  - Drug ineffective [Unknown]

NARRATIVE: CASE EVENT DATE: 20180102
